FAERS Safety Report 6658771 (Version 3)
Quarter: 2020Q3

REPORT INFORMATION
  Report Type: Report from Study
  Country: US (occurrence: US)
  Receive Date: 20080606
  Receipt Date: 20080826
  Transmission Date: 20201105
  Serious: Yes (Hospitalization)
  Sender: FDA-Public Use
  Company Number: US-ROCHE-567126

PATIENT
  Age: 89 Year
  Sex: Female

DRUGS (1)
  1. IBANDRONIC ACID. [Suspect]
     Active Substance: IBANDRONIC ACID
     Indication: OSTEOPOROSIS
     Route: 065
     Dates: start: 2007

REACTIONS (2)
  - Rib fracture [Recovering/Resolving]
  - Fall [None]

NARRATIVE: CASE EVENT DATE: 20080323
